FAERS Safety Report 14242497 (Version 1)
Quarter: 2017Q4

REPORT INFORMATION
  Report Type: Spontaneous
  Country: US (occurrence: None)
  Receive Date: 20171130
  Receipt Date: 20171130
  Transmission Date: 20180321
  Serious: Yes (Death)
  Sender: FDA-Public Use
  Company Number: None

PATIENT
  Age: 62 Year
  Sex: Male

DRUGS (1)
  1. ZOLINZA [Suspect]
     Active Substance: VORINOSTAT
     Indication: MYCOSIS FUNGOIDES
     Route: 048
     Dates: start: 20170823, end: 20171108

REACTIONS (2)
  - Kidney infection [None]
  - Pneumonia [None]

NARRATIVE: CASE EVENT DATE: 20171108
